FAERS Safety Report 21806585 (Version 5)
Quarter: 2023Q1

REPORT INFORMATION
  Report Type: Report from Study
  Country: US (occurrence: US)
  Receive Date: 20230102
  Receipt Date: 20230209
  Transmission Date: 20230418
  Serious: No
  Sender: FDA-Public Use
  Company Number: US-002147023-NVSC2022US302155

PATIENT
  Age: 2 Year
  Sex: Female

DRUGS (1)
  1. ILARIS [Suspect]
     Active Substance: CANAKINUMAB
     Indication: Juvenile idiopathic arthritis
     Dosage: 45 MG, (EVERY 28 DAYS)
     Route: 058
     Dates: start: 20221230

REACTIONS (4)
  - Cough [Unknown]
  - Nasal congestion [Unknown]
  - Product administration error [Unknown]
  - Overdose [Unknown]

NARRATIVE: CASE EVENT DATE: 20221230
